FAERS Safety Report 22033706 (Version 1)
Quarter: 2023Q1

REPORT INFORMATION
  Report Type: Spontaneous
  Country: US (occurrence: None)
  Receive Date: 20230222
  Receipt Date: 20230222
  Transmission Date: 20230418
  Serious: Yes (Disabling)
  Sender: FDA-Public Use
  Company Number: None

PATIENT
  Age: 59 Year
  Sex: Female
  Weight: 81 kg

DRUGS (15)
  1. FENTANYL [Suspect]
     Active Substance: FENTANYL
     Indication: Procedural pain
     Dosage: OTHER QUANTITY : 10 PATCH(ES);?OTHER FREQUENCY : EVERY 72 HOURS;?
     Route: 062
     Dates: end: 20230210
  2. FENTANYL [Concomitant]
     Active Substance: FENTANYL
  3. OXYCODONE [Concomitant]
     Active Substance: OXYCODONE
  4. Treligy 100 [Concomitant]
  5. ATENOLOL [Concomitant]
     Active Substance: ATENOLOL
  6. RAMIPRIL [Concomitant]
     Active Substance: RAMIPRIL
  7. ONDANSETRON [Concomitant]
     Active Substance: ONDANSETRON
  8. Provistatin 20 MG [Concomitant]
  9. PROAIR HFA [Concomitant]
     Active Substance: ALBUTEROL SULFATE
  10. TIZANIDINE [Concomitant]
     Active Substance: TIZANIDINE
  11. Omeperazole 40 MG [Concomitant]
  12. Femotidine 40 MG [Concomitant]
  13. GAS-X [Concomitant]
     Active Substance: DIMETHICONE
  14. ASPIRIN [Concomitant]
     Active Substance: ASPIRIN
  15. Turmaric [Concomitant]

REACTIONS (8)
  - Product availability issue [None]
  - Pain [None]
  - Cardiac failure [None]
  - Hypotension [None]
  - Epistaxis [None]
  - Insurance issue [None]
  - Blood pressure fluctuation [None]
  - Therapy interrupted [None]

NARRATIVE: CASE EVENT DATE: 20230210
